FAERS Safety Report 5748097-0 (Version None)
Quarter: 2008Q2

REPORT INFORMATION
  Report Type: 
  Country: None (occurrence: None)
  Receive Date: 20080521
  Receipt Date: 20080512
  Transmission Date: 20081010
  Serious: Yes (Hospitalization, Other)
  Sender: FDA-Public Use
  Company Number: 2006BI011680

PATIENT
  Age: 48 Year
  Sex: Female
  Weight: 151.955 kg

DRUGS (8)
  1. AVONEX [Suspect]
     Indication: MULTIPLE SCLEROSIS
     Dosage: 30 UG;QW;IM
     Route: 030
     Dates: start: 20000301, end: 20080427
  2. AMANTADINE HCL [Concomitant]
  3. COZAAR [Concomitant]
  4. ANTIVERT [Concomitant]
  5. ALAVERT [Concomitant]
  6. LASIX [Concomitant]
  7. CYMBALTA [Concomitant]
  8. THYROID MED [Concomitant]

REACTIONS (9)
  - BILE DUCT CANCER [None]
  - BLOOD ALBUMIN DECREASED [None]
  - DEHYDRATION [None]
  - DIZZINESS [None]
  - HEPATIC NEOPLASM MALIGNANT [None]
  - HYPOTENSION [None]
  - PYREXIA [None]
  - SEPSIS [None]
  - URINARY TRACT INFECTION [None]
